FAERS Safety Report 7346820-5 (Version None)
Quarter: 2011Q1

REPORT INFORMATION
  Report Type: 
  Country: None (occurrence: None)
  Receive Date: 20110311
  Receipt Date: 20110302
  Transmission Date: 20110831
  Serious: Yes (Other)
  Sender: FDA-Public Use
  Company Number: JP-JNJFOC-20110302526

PATIENT
  Sex: Male

DRUGS (2)
  1. RISPERDAL [Suspect]
     Dosage: 2 MG IN MORNING 2 MG IN EVENING AND 4 MG AT BED TIME
     Route: 048
  2. RISPERDAL [Suspect]
     Indication: PRODUCT USED FOR UNKNOWN INDICATION
     Dosage: STARTED 6 YEARS AGO
     Route: 048

REACTIONS (1)
  - AMNESIA [None]
